FAERS Safety Report 9412239 (Version 1)
Quarter: 2013Q3

REPORT INFORMATION
  Report Type: Report from Study
  Country: DE (occurrence: DE)
  Receive Date: 20130722
  Receipt Date: 20130722
  Transmission Date: 20140515
  Serious: Yes (Hospitalization)
  Sender: FDA-Public Use
  Company Number: DE-ELI_LILLY_AND_COMPANY-DE201307003658

PATIENT
  Sex: Female

DRUGS (1)
  1. TERIPARATIDE [Suspect]
     Indication: OSTEOPOROSIS
     Dosage: UNK, QD
     Route: 058
     Dates: start: 20130331, end: 20130703

REACTIONS (3)
  - Nausea [Not Recovered/Not Resolved]
  - Hypophagia [Not Recovered/Not Resolved]
  - Anaemia [Not Recovered/Not Resolved]
